FAERS Safety Report 4623904-3 (Version None)
Quarter: 2005Q1

REPORT INFORMATION
  Report Type: 
  Country: None (occurrence: None)
  Receive Date: 20050331
  Receipt Date: 20050316
  Transmission Date: 20050727
  Serious: Yes (Other)
  Sender: FDA-Public Use
  Company Number: FR-BOEHRINGER INGELHEIM PHARMACEUTICALS, INC.-2005-FF-00185FF

PATIENT
  Sex: Female

DRUGS (3)
  1. VIRAMUNE [Suspect]
     Route: 065
  2. AZT [Concomitant]
     Route: 065
  3. 3TC [Concomitant]
     Route: 065

REACTIONS (1)
  - UTERINE INVERSION [None]
